FAERS Safety Report 8575998-0 (Version None)
Quarter: 2012Q3

REPORT INFORMATION
  Report Type: 
  Country: None (occurrence: None)
  Receive Date: 20120724
  Receipt Date: 20120711
  Transmission Date: 20120928
  Serious: Yes (Other)
  Sender: FDA-Public Use
  Company Number: 2012P1049960

PATIENT
  Age: 13 Year
  Sex: Male

DRUGS (2)
  1. LAMOTRIGINE [Concomitant]
  2. LEVETIRACETAM [Suspect]
     Indication: EPILEPSY
     Dosage: 40 MG/KG;QD; 57 MG/KG;QD;

REACTIONS (2)
  - PETIT MAL EPILEPSY [None]
  - GRAND MAL CONVULSION [None]
